FAERS Safety Report 10181641 (Version 6)
Quarter: 2016Q3

REPORT INFORMATION
  Report Type: Spontaneous
  Country: US (occurrence: US)
  Receive Date: 20140519
  Receipt Date: 20160908
  Transmission Date: 20161108
  Serious: Yes (Hospitalization, Disabling, Other)
  Sender: FDA-Public Use
  Company Number: US-009507513-1405USA004513

PATIENT
  Sex: Female

DRUGS (7)
  1. ASCORBIC ACID. [Concomitant]
     Active Substance: ASCORBIC ACID
     Indication: PRODUCT USED FOR UNKNOWN INDICATION
     Dosage: 2000 MG, QD
     Route: 065
     Dates: start: 200001
  2. VITAMIN D [Concomitant]
     Active Substance: CHOLECALCIFEROL
     Indication: PRODUCT USED FOR UNKNOWN INDICATION
     Dosage: 1000 IU, QD
     Route: 048
     Dates: start: 200001
  3. FOSAMAX [Suspect]
     Active Substance: ALENDRONATE SODIUM
     Indication: OSTEOPOROSIS
  4. CALCIUM (UNSPECIFIED) [Concomitant]
     Active Substance: CALCIUM
     Indication: PRODUCT USED FOR UNKNOWN INDICATION
     Dosage: 1200 MG, QD
     Route: 065
     Dates: start: 200001
  5. ZOMETA [Suspect]
     Active Substance: ZOLEDRONIC ACID
     Indication: OSTEOPOROSIS
     Dosage: 4 MG, EACH MONTH
     Route: 065
     Dates: start: 200903
  6. FOSAMAX [Suspect]
     Active Substance: ALENDRONATE SODIUM
     Indication: OSTEOPENIA
     Dosage: 70 MG, QW
     Route: 048
     Dates: start: 199911, end: 200902
  7. VITAMIN E [Concomitant]
     Active Substance: .ALPHA.-TOCOPHEROL
     Indication: PRODUCT USED FOR UNKNOWN INDICATION
     Dosage: 500 MG, QD
     Route: 065
     Dates: start: 200001

REACTIONS (36)
  - Thrombotic thrombocytopenic purpura [Unknown]
  - Hepatic lesion [Unknown]
  - Acute kidney injury [Unknown]
  - Asthenia [Unknown]
  - Hepatitis acute [Unknown]
  - Fall [Unknown]
  - Oedema [Unknown]
  - Dizziness [Unknown]
  - Joint effusion [Unknown]
  - Breast cancer metastatic [Unknown]
  - Dizziness [Recovered/Resolved]
  - Breast neoplasm [Unknown]
  - Solar lentigo [Unknown]
  - Diverticulum [Unknown]
  - Encephalopathy [Unknown]
  - Confusional state [Unknown]
  - Metastases to liver [Unknown]
  - Haemarthrosis [Unknown]
  - Anaemia [Not Recovered/Not Resolved]
  - Coombs test positive [Unknown]
  - Osteoporosis [Unknown]
  - Foot fracture [Unknown]
  - Bone marrow transplant [Unknown]
  - Renal cyst [Unknown]
  - Femur fracture [Recovered/Resolved]
  - Deep vein thrombosis [Unknown]
  - Dizziness postural [Unknown]
  - Subarachnoid haemorrhage [Unknown]
  - Femur fracture [Unknown]
  - Hypertension [Unknown]
  - Thrombocytopenia [Not Recovered/Not Resolved]
  - Urinary tract infection [Recovered/Resolved]
  - Mastectomy [Unknown]
  - Fatigue [Unknown]
  - Lymphadenectomy [Unknown]
  - Haemoglobin decreased [Recovering/Resolving]

NARRATIVE: CASE EVENT DATE: 2009
